FAERS Safety Report 4630291-3 (Version None)
Quarter: 2005Q2

REPORT INFORMATION
  Report Type: 
  Country: None (occurrence: None)
  Receive Date: 20050408
  Receipt Date: 20050329
  Transmission Date: 20051028
  Serious: Yes (Other)
  Sender: FDA-Public Use
  Company Number: 200510962JP

PATIENT
  Age: 7 Month
  Sex: Male

DRUGS (1)
  1. LASIX [Suspect]
     Indication: RESPIRATORY DISTRESS
     Route: 041

REACTIONS (1)
  - HEPATOBLASTOMA [None]
